FAERS Safety Report 25231693 (Version 2)
Quarter: 2025Q2

REPORT INFORMATION
  Report Type: Spontaneous
  Country: CN (occurrence: CN)
  Receive Date: 20250423
  Receipt Date: 20250428
  Transmission Date: 20250717
  Serious: Yes (Hospitalization, Other)
  Sender: NOVARTIS
  Company Number: CN-002147023-NVSC2025CN064416

PATIENT
  Age: 83 Year
  Sex: Female
  Weight: 54 kg

DRUGS (4)
  1. ENTRESTO [Suspect]
     Active Substance: SACUBITRIL\VALSARTAN
     Indication: Hypertension
     Dosage: 100 MG, QD
     Route: 048
     Dates: start: 20240403, end: 20250409
  2. MEMANTINE HYDROCHLORIDE [Concomitant]
     Active Substance: MEMANTINE HYDROCHLORIDE
     Indication: Dementia Alzheimer^s type
     Dosage: 10 MG, QD
     Route: 048
     Dates: start: 20250324, end: 20250416
  3. QUETIAPINE FUMARATE [Concomitant]
     Active Substance: QUETIAPINE FUMARATE
     Indication: Dementia Alzheimer^s type
     Dosage: 25 MG, QD
     Route: 048
     Dates: start: 20250324, end: 20250416
  4. VALPROATE SODIUM [Concomitant]
     Active Substance: VALPROATE SODIUM
     Indication: Dementia Alzheimer^s type
     Dosage: 0.1 G, BID
     Route: 048
     Dates: start: 20250402, end: 20250416

REACTIONS (5)
  - Erythema [Recovering/Resolving]
  - Peripheral swelling [Recovering/Resolving]
  - Memory impairment [Unknown]
  - Condition aggravated [Unknown]
  - Insomnia [Unknown]

NARRATIVE: CASE EVENT DATE: 20250409
